FAERS Safety Report 6689923-0 (Version None)
Quarter: 2010Q2

REPORT INFORMATION
  Report Type: 
  Country: None (occurrence: None)
  Receive Date: 20100421
  Receipt Date: 20100416
  Transmission Date: 20101027
  Serious: Yes (Hospitalization)
  Sender: FDA-Public Use
  Company Number: US-BAYER-201014323BCC

PATIENT
  Age: 64 Year
  Sex: Female
  Weight: 66 kg

DRUGS (4)
  1. ASPIRIN [Suspect]
     Indication: DRUG USE FOR UNKNOWN INDICATION
     Route: 048
  2. PLAVIX [Suspect]
     Indication: STENT PLACEMENT
     Route: 048
     Dates: start: 20080101
  3. OXYCODONE [Concomitant]
     Dosage: TOTAL DAILY DOSE: 40 MG  UNIT DOSE: 20 MG
     Route: 065
  4. CYCLOBENZAPRINE [Concomitant]
     Route: 065

REACTIONS (2)
  - HAEMATOMA [None]
  - RED BLOOD CELL COUNT DECREASED [None]
